FAERS Safety Report 4798337-X (Version None)
Quarter: 2005Q4

REPORT INFORMATION
  Report Type: 
  Country: None (occurrence: None)
  Receive Date: 20051014
  Receipt Date: 20051011
  Transmission Date: 20060501
  Serious: Yes (Life-Threatening, Hospitalization)
  Sender: FDA-Public Use
  Company Number: BR-BRISTOL-MYERS SQUIBB COMPANY-13142195

PATIENT
  Age: 54 Year
  Sex: Female

DRUGS (7)
  1. CETUXIMAB [Suspect]
     Indication: NON-SMALL CELL LUNG CANCER
     Route: 041
     Dates: start: 20050408
  2. CISPLATIN [Suspect]
     Indication: NON-SMALL CELL LUNG CANCER
     Route: 042
     Dates: start: 20050408
  3. VINORELBINE [Suspect]
     Indication: NON-SMALL CELL LUNG CANCER
     Route: 042
     Dates: start: 20050408
  4. OMEPRAZOLE [Concomitant]
     Indication: GASTRITIS
  5. DIMENHYDRINATE [Concomitant]
     Indication: VOMITING
  6. METOCLOPRAMIDE [Concomitant]
     Indication: VOMITING
  7. DIAZEPAM [Concomitant]
     Indication: INSOMNIA

REACTIONS (1)
  - HYPOCALCAEMIA [None]
